FAERS Safety Report 21998293 (Version 1)
Quarter: 2023Q1

REPORT INFORMATION
  Report Type: Spontaneous
  Country: ES (occurrence: ES)
  Receive Date: 20230216
  Receipt Date: 20230216
  Transmission Date: 20230417
  Serious: Yes (Other)
  Sender: FDA-Public Use
  Company Number: ES-AEMPS-1327873

PATIENT
  Age: 52 Year
  Sex: Male

DRUGS (3)
  1. IRINOTECAN [Suspect]
     Active Substance: IRINOTECAN
     Indication: Colorectal cancer
     Dosage: 252 MILLIGRAM, 252 MILLIGRAMS (180MG/M2) REDUCTION ON 10/31/22 TO 85% OF THE TOTAL 214.2 MILLIGRAMS
     Route: 042
     Dates: start: 20221017, end: 20230113
  2. FLUOROURACIL [Suspect]
     Active Substance: FLUOROURACIL
     Indication: Colorectal cancer
     Dosage: 476 MILLIGRAM, 476 MILLIGRAMS (340MG/M2) REDUCED TO 85% OF THE TOTAL
     Route: 042
     Dates: start: 20221031
  3. VECTIBIX [Suspect]
     Active Substance: PANITUMUMAB
     Indication: Colorectal cancer
     Dosage: 288 MILIGRAMOS (6MG/KG)
     Route: 042
     Dates: start: 20221017, end: 20230113

REACTIONS (3)
  - Skin fissures [Not Recovered/Not Resolved]
  - Palmar-plantar erythrodysaesthesia syndrome [Not Recovered/Not Resolved]
  - Dermatitis acneiform [Not Recovered/Not Resolved]

NARRATIVE: CASE EVENT DATE: 20221101
